FAERS Safety Report 6456627-9 (Version None)
Quarter: 2009Q4

REPORT INFORMATION
  Report Type: 
  Country: None (occurrence: None)
  Receive Date: 20091124
  Receipt Date: 20091124
  Transmission Date: 20100525
  Serious: Yes (Hospitalization)
  Sender: FDA-Public Use
  Company Number: None

PATIENT
  Sex: Male
  Weight: 36 kg

DRUGS (6)
  1. PEG-L ASPARAGINASE (PEGASPARGASE, ONCOSPAR) [Suspect]
     Dosage: 3225 IU
     Dates: end: 20090720
  2. VINCRISTINE SULFATE [Suspect]
     Dosage: 3.8 MG
  3. CYCLOPHOSPHAMIDE [Suspect]
     Dosage: 2580 MG
     Dates: end: 20090804
  4. CYTARABINE [Suspect]
     Dosage: 1191 MG
     Dates: end: 20090804
  5. MERCAPTOPURINE [Suspect]
     Dosage: 2100 MG
  6. METHOTREXATE [Suspect]
     Dosage: 60 MG
     Dates: end: 20090728

REACTIONS (6)
  - BLOOD CREATININE INCREASED [None]
  - HYPOPHAGIA [None]
  - HYPOTENSION [None]
  - PANCREATITIS [None]
  - SINUS TACHYCARDIA [None]
  - VOMITING [None]
